FAERS Safety Report 12968569 (Version 1)
Quarter: 2016Q4

REPORT INFORMATION
  Report Type: Other
  Country: NO (occurrence: NO)
  Receive Date: 20161123
  Receipt Date: 20161123
  Transmission Date: 20170207
  Serious: Yes (Disabling)
  Sender: FDA-Public Use
  Company Number: NO-HIKMA PHARMACEUTICALS CO. LTD-2016NO012208

PATIENT

DRUGS (3)
  1. REMSIMA [Suspect]
     Active Substance: INFLIXIMAB
     Indication: ANKYLOSING SPONDYLITIS
     Dosage: 3 MG/KG, UNK
     Route: 051
     Dates: start: 201408, end: 201408
  2. REMSIMA [Suspect]
     Active Substance: INFLIXIMAB
     Dosage: 3 MG/KG, UNK
     Route: 051
     Dates: start: 201504, end: 201504
  3. CIMZIA [Suspect]
     Active Substance: CERTOLIZUMAB PEGOL
     Indication: ANKYLOSING SPONDYLITIS
     Dosage: 200 MG/2 WEEKS,
     Route: 051
     Dates: start: 201504, end: 201602

REACTIONS (2)
  - Drug specific antibody present [Unknown]
  - Chondrosarcoma [Recovering/Resolving]

NARRATIVE: CASE EVENT DATE: 201504
